FAERS Safety Report 14478796 (Version 1)
Quarter: 2018Q1

REPORT INFORMATION
  Report Type: Report from Study
  Country: None (occurrence: AR)
  Receive Date: 20180202
  Receipt Date: 20180202
  Transmission Date: 20180509
  Serious: Yes (Other)
  Sender: FDA-Public Use
  Company Number: AR-ABBVIE-18K-007-2241453-00

PATIENT
  Age: 66 Year
  Sex: Female

DRUGS (5)
  1. HUMIRA [Suspect]
     Active Substance: ADALIMUMAB
     Indication: RHEUMATOID ARTHRITIS
     Route: 058
     Dates: start: 20160714
  2. HUMIRA [Suspect]
     Active Substance: ADALIMUMAB
     Indication: RHEUMATOID ARTHRITIS
     Route: 058
     Dates: start: 20160714
  3. ARTRAIT [Suspect]
     Active Substance: METHOTREXATE SODIUM
     Dosage: AT NIGHT
     Route: 065
  4. ARTRAIT [Suspect]
     Active Substance: METHOTREXATE SODIUM
     Indication: PRODUCT USED FOR UNKNOWN INDICATION
     Dosage: AT MORNING AND AT NIGHT
     Route: 065
  5. ARTRAIT [Suspect]
     Active Substance: METHOTREXATE SODIUM
     Dosage: AT MORNING AND AT NIGHT
     Route: 065

REACTIONS (2)
  - Anaemia [Recovered/Resolved]
  - Arthralgia [Unknown]

NARRATIVE: CASE EVENT DATE: 201710
